FAERS Safety Report 24538826 (Version 1)
Quarter: 2024Q4

REPORT INFORMATION
  Report Type: Spontaneous
  Country: US (occurrence: US)
  Receive Date: 20241023
  Receipt Date: 20241023
  Transmission Date: 20250114
  Serious: Yes (Death, Other)
  Sender: AUROBINDO
  Company Number: US-AUROBINDO-AUR-APL-2024-051701

PATIENT
  Age: 49 Year
  Sex: Female

DRUGS (3)
  1. MILRINONE LACTATE [Suspect]
     Active Substance: MILRINONE LACTATE
     Indication: Right-to-left cardiac shunt
     Dosage: DRIP
     Route: 065
  2. SILDENAFIL [Suspect]
     Active Substance: SILDENAFIL
     Indication: Right-to-left cardiac shunt
     Dosage: UNK
     Route: 065
  3. NITRIC OXIDE [Suspect]
     Active Substance: NITRIC OXIDE
     Indication: Right-to-left cardiac shunt
     Dosage: UNK

REACTIONS (1)
  - Drug ineffective [Fatal]
